FAERS Safety Report 8935266 (Version 1)
Quarter: 2012Q4

REPORT INFORMATION
  Report Type: 
  Country: US (occurrence: US)
  Receive Date: 20121129
  Receipt Date: 20121129
  Transmission Date: 20130627
  Serious: No
  Sender: FDA-Public Use
  Company Number: US-TEVA-369339USA

PATIENT
  Age: 35 Year
  Sex: Male
  Weight: 74.91 kg

DRUGS (2)
  1. NUVIGIL [Suspect]
     Dosage: 1/2 tablet QAM
     Route: 048
     Dates: start: 20121024
  2. PROBIOTICA [Concomitant]
     Route: 048

REACTIONS (4)
  - Activities of daily living impaired [Recovered/Resolved]
  - Drug ineffective [Recovered/Resolved]
  - Migraine [Recovered/Resolved]
  - Gastrointestinal infection [Unknown]
